FAERS Safety Report 4562245-X (Version None)
Quarter: 2005Q1

REPORT INFORMATION
  Report Type: 
  Country: None (occurrence: None)
  Receive Date: 20050124
  Receipt Date: 20050110
  Transmission Date: 20050727
  Serious: Yes (Disabling, Other)
  Sender: FDA-Public Use
  Company Number: 2004096710

PATIENT
  Sex: Male
  Weight: 74.8435 kg

DRUGS (5)
  1. NEURONTIN [Suspect]
     Indication: EPILEPSY
     Dosage: ORAL
     Route: 048
  2. PHENYTOIN SODIUM [Concomitant]
  3. PHENOBARBITAL TAB [Concomitant]
  4. VALPROATE SODIUM [Concomitant]
  5. ESCITALOPRAM (ESCITALOPRAM) [Concomitant]

REACTIONS (6)
  - DEPRESSION [None]
  - DISCOMFORT [None]
  - ENURESIS [None]
  - POLLAKIURIA [None]
  - PRURITUS [None]
  - URINARY INCONTINENCE [None]
